FAERS Safety Report 6123122-6 (Version None)
Quarter: 2009Q1

REPORT INFORMATION
  Report Type: 
  Country: None (occurrence: None)
  Receive Date: 20090318
  Receipt Date: 20090313
  Transmission Date: 20090719
  Serious: Yes (Life-Threatening)
  Sender: FDA-Public Use
  Company Number: JP-EISAI MEDICAL RESEARCH-E2090-00688-SPO-JP

PATIENT
  Age: 85 Year
  Sex: Female

DRUGS (2)
  1. EXCEGRAN [Suspect]
     Indication: CONVULSION PROPHYLAXIS
     Route: 048
     Dates: start: 20081221, end: 20090127
  2. MEIACT [Concomitant]
     Route: 048

REACTIONS (1)
  - HEPATIC FAILURE [None]
